FAERS Safety Report 13707645 (Version 1)
Quarter: 2017Q2

REPORT INFORMATION
  Report Type: Spontaneous
  Country: US (occurrence: US)
  Receive Date: 20170630
  Receipt Date: 20170630
  Transmission Date: 20170830
  Serious: Yes (Other)
  Sender: FDA-Public Use
  Company Number: US-MALLINCKRODT-T201702604

PATIENT
  Age: 67 Year
  Sex: Female
  Weight: 52 kg

DRUGS (3)
  1. H.P. ACTHAR [Suspect]
     Active Substance: CORTICOTROPIN
     Dosage: ONCE DAILY
     Route: 030
     Dates: start: 20170612, end: 20170614
  2. H.P. ACTHAR [Suspect]
     Active Substance: CORTICOTROPIN
     Indication: MULTIPLE SCLEROSIS RELAPSE
     Dosage: ONCE DAILY
     Route: 030
  3. SOLU-MEDROL [Concomitant]
     Active Substance: METHYLPREDNISOLONE SODIUM SUCCINATE
     Indication: PRODUCT USED FOR UNKNOWN INDICATION
     Route: 042

REACTIONS (10)
  - Neck pain [Unknown]
  - Hypoaesthesia [Unknown]
  - Skin burning sensation [Unknown]
  - Pyrexia [Unknown]
  - Bradyphrenia [Unknown]
  - Diarrhoea [Unknown]
  - Decreased appetite [Unknown]
  - Pain of skin [Unknown]
  - Asthenia [Unknown]
  - Head discomfort [Unknown]
